FAERS Safety Report 17149214 (Version 6)
Quarter: 2021Q4

REPORT INFORMATION
  Report Type: Other
  Country: PA (occurrence: PA)
  Receive Date: 20191213
  Receipt Date: 20211103
  Transmission Date: 20220304
  Serious: Yes (Other)
  Sender: FDA-Public Use
  Company Number: PA-002147023-PHHY2019PA188713

PATIENT
  Age: 21 Year
  Sex: Male

DRUGS (8)
  1. XOLAIR [Suspect]
     Active Substance: OMALIZUMAB
     Indication: Asthma
     Route: 065
  2. XOLAIR [Suspect]
     Active Substance: OMALIZUMAB
     Indication: Bronchiectasis
     Route: 065
     Dates: start: 20190730
  3. XOLAIR [Suspect]
     Active Substance: OMALIZUMAB
     Route: 058
  4. XOLAIR [Suspect]
     Active Substance: OMALIZUMAB
     Route: 058
     Dates: start: 20190630
  5. XOLAIR [Suspect]
     Active Substance: OMALIZUMAB
     Route: 065
     Dates: start: 201905, end: 202010
  6. XOLAIR [Suspect]
     Active Substance: OMALIZUMAB
     Route: 065
     Dates: start: 2019, end: 202101
  7. XOLAIR [Suspect]
     Active Substance: OMALIZUMAB
     Dosage: 150 MG (STOP: 3-4 MONTHS APPROXIMATELY)
     Route: 065
  8. XOLAIR [Suspect]
     Active Substance: OMALIZUMAB
     Route: 065
     Dates: start: 2019

REACTIONS (7)
  - Asthmatic crisis [Recovered/Resolved]
  - Nasopharyngitis [Unknown]
  - Dizziness [Unknown]
  - Asthmatic crisis [Recovered/Resolved]
  - Incorrect dose administered [Unknown]
  - Off label use [Unknown]
  - Hyperhidrosis [Unknown]
